FAERS Safety Report 18076854 (Version 1)
Quarter: 2020Q3

REPORT INFORMATION
  Report Type: Spontaneous
  Country: US (occurrence: US)
  Receive Date: 20200727
  Receipt Date: 20200727
  Transmission Date: 20201103
  Serious: Yes (Hospitalization, Other)
  Sender: FDA-Public Use
  Company Number: US-BRISTOL-MYERS SQUIBB COMPANY-BMS-2020-058198

PATIENT
  Age: 74 Year
  Sex: Female

DRUGS (2)
  1. IPILIMUMAB [Suspect]
     Active Substance: IPILIMUMAB
     Indication: METASTATIC MALIGNANT MELANOMA
     Route: 065
  2. EVOFOSFAMIDE [Suspect]
     Active Substance: EVOFOSFAMIDE
     Indication: METASTATIC MALIGNANT MELANOMA
     Route: 065

REACTIONS (5)
  - Rash [Unknown]
  - Atrial fibrillation [Unknown]
  - Transaminases increased [Unknown]
  - Myocarditis [Unknown]
  - Arthralgia [Unknown]
